FAERS Safety Report 16058834 (Version 1)
Quarter: 2019Q1

REPORT INFORMATION
  Report Type: Spontaneous
  Country: US (occurrence: US)
  Receive Date: 20190311
  Receipt Date: 20190311
  Transmission Date: 20190418
  Serious: No
  Sender: FDA-Public Use
  Company Number: PHEH2019US009778

PATIENT
  Sex: Female
  Weight: 49.9 kg

DRUGS (6)
  1. TIMOLOL. [Suspect]
     Active Substance: TIMOLOL
     Indication: GLAUCOMA
     Route: 065
  2. TIMOLOL. [Suspect]
     Active Substance: TIMOLOL
     Indication: MACULAR DEGENERATION
  3. LUMIGAN [Suspect]
     Active Substance: BIMATOPROST
     Indication: DRY EYE
  4. TIMOLOL. [Suspect]
     Active Substance: TIMOLOL
     Indication: DRY EYE
  5. LUMIGAN [Suspect]
     Active Substance: BIMATOPROST
     Indication: MACULAR DEGENERATION
  6. LUMIGAN [Suspect]
     Active Substance: BIMATOPROST
     Indication: GLAUCOMA
     Route: 065

REACTIONS (1)
  - Eye irritation [Unknown]

NARRATIVE: CASE EVENT DATE: 1990
